FAERS Safety Report 23211651 (Version 1)
Quarter: 2023Q4

REPORT INFORMATION
  Report Type: Spontaneous
  Country: IT (occurrence: IT)
  Receive Date: 20231121
  Receipt Date: 20231121
  Transmission Date: 20240109
  Serious: Yes (Other)
  Sender: FDA-Public Use
  Company Number: None

PATIENT
  Age: 44 Year
  Sex: Female
  Weight: 95 kg

DRUGS (6)
  1. PACLITAXEL [Suspect]
     Active Substance: PACLITAXEL
     Indication: Breast cancer
     Dosage: 1ST CYCLE/1ST DAY PACLITAXEL ACTAVIS* 300ML 50ML (NOT PRESENT IN THE LIST) ; ADMINISTERED DOSE: 130
     Dates: start: 20231017
  2. METOCLOPRAMIDE [Concomitant]
     Active Substance: METOCLOPRAMIDE
     Indication: Nausea
     Dosage: METOCLOPRAMIDE (PA) ADMINISTERED 10 MG - 1 TIME PER WEEK FOR CHEMOTHERAPY: WEEKLY PACLITAXEL PROTOCO
     Dates: start: 20231017
  3. DEXAMETHASONE [Concomitant]
     Active Substance: DEXAMETHASONE
     Indication: Steroid therapy
     Dosage: DEXAMETHASONE (PA) ADMINISTERED 8 MG - 1 TIME PER WEEK FOR CHEMOTHERAPY: WEEKLY PACLITAXEL PROTOCOL
     Dates: start: 20231017
  4. DEXAMETHASONE [Concomitant]
     Active Substance: DEXAMETHASONE
     Indication: Chemotherapy side effect prophylaxis
  5. GRANISETRON [Concomitant]
     Active Substance: GRANISETRON
     Indication: Vomiting
     Dosage: GRANISETRON (PA) ADMINISTERED 3 MG ONCE A WEEK FOR CHEMOTHERAPY: WEEKLY PACLITAXEL PROTOCOL
     Dates: start: 20231017
  6. GRANISETRON [Concomitant]
     Active Substance: GRANISETRON
     Indication: Chemotherapy side effect prophylaxis

REACTIONS (2)
  - Throat tightness [Recovered/Resolved]
  - Hypoaesthesia oral [Recovered/Resolved]

NARRATIVE: CASE EVENT DATE: 20231017
